FAERS Safety Report 7357790-8 (Version None)
Quarter: 2011Q1

REPORT INFORMATION
  Report Type: 
  Country: None (occurrence: None)
  Receive Date: 20110314
  Receipt Date: 20110314
  Transmission Date: 20110831
  Serious: Yes (Hospitalization)
  Sender: FDA-Public Use
  Company Number: None

PATIENT
  Age: 54 Year
  Sex: Male
  Weight: 124.5 kg

DRUGS (1)
  1. BUPROPION HYDROCHLORIDE [Suspect]
     Indication: DEPRESSION
     Dosage: 200 MG BID PO
     Route: 048
     Dates: start: 20100812, end: 20110228

REACTIONS (2)
  - HAEMATOMA [None]
  - GRAND MAL CONVULSION [None]
